FAERS Safety Report 10841549 (Version 1)
Quarter: 2015Q1

REPORT INFORMATION
  Report Type: Report from Study
  Country: AR (occurrence: AR)
  Receive Date: 20150220
  Receipt Date: 20150220
  Transmission Date: 20150721
  Serious: Yes (Hospitalization)
  Sender: FDA-Public Use
  Company Number: AR-BIOGENIDEC-2015BI016771

PATIENT
  Age: 28 Year
  Sex: Female

DRUGS (3)
  1. PHENYTOIN. [Concomitant]
     Active Substance: PHENYTOIN
  2. METFORMIN [Concomitant]
     Active Substance: METFORMIN HYDROCHLORIDE
  3. TYSABRI [Suspect]
     Active Substance: NATALIZUMAB
     Indication: MULTIPLE SCLEROSIS
     Route: 042
     Dates: start: 201210

REACTIONS (4)
  - Concussion [Not Recovered/Not Resolved]
  - Skull fractured base [Not Recovered/Not Resolved]
  - Fall [Recovered/Resolved]
  - Traumatic intracranial haemorrhage [Not Recovered/Not Resolved]

NARRATIVE: CASE EVENT DATE: 20150104
